FAERS Safety Report 7060546-7 (Version None)
Quarter: 2010Q4

REPORT INFORMATION
  Report Type: 
  Country: None (occurrence: None)
  Receive Date: 20101025
  Receipt Date: 20101012
  Transmission Date: 20110411
  Serious: Yes (Hospitalization)
  Sender: FDA-Public Use
  Company Number: US-ELI_LILLY_AND_COMPANY-US201010002998

PATIENT
  Sex: Female

DRUGS (16)
  1. FORTEO [Suspect]
     Indication: OSTEOPOROSIS
     Dosage: 20 UG, DAILY (1/D)
  2. DEMADEX [Concomitant]
  3. WARFARIN SODIUM [Concomitant]
  4. CITRACAL [Concomitant]
  5. METOPROLOL [Concomitant]
  6. FISH OIL [Concomitant]
  7. HYDROCODONE [Concomitant]
  8. FAMOTIDIN [Concomitant]
     Indication: GASTROOESOPHAGEAL REFLUX DISEASE
  9. POTASSIUM CHLORIDE [Concomitant]
  10. ARICEPT [Concomitant]
  11. NAMENDA [Concomitant]
  12. MULTI-VIT [Concomitant]
  13. OXYCONTIN [Concomitant]
  14. NEURONTIN [Concomitant]
  15. VOLTAREN [Concomitant]
  16. ATIVAN [Concomitant]

REACTIONS (1)
  - OEDEMA PERIPHERAL [None]
